FAERS Safety Report 7130592-3 (Version None)
Quarter: 2010Q4

REPORT INFORMATION
  Report Type: 
  Country: None (occurrence: None)
  Receive Date: 20101201
  Receipt Date: 20101122
  Transmission Date: 20110411
  Serious: Yes (Disabling, Other)
  Sender: FDA-Public Use
  Company Number: CA-ASTRAZENECA-2010SE56098

PATIENT
  Age: 710 Month
  Sex: Female
  Weight: 50 kg

DRUGS (14)
  1. ARIMIDEX [Suspect]
     Route: 048
     Dates: start: 20080101
  2. PARIET [Concomitant]
     Indication: GASTROOESOPHAGEAL REFLUX DISEASE
  3. METAMUCIL-2 [Concomitant]
     Route: 048
  4. SENOKOT [Concomitant]
     Route: 048
  5. LACTULOSE [Concomitant]
  6. PALAFER [Concomitant]
     Dosage: 1300 MG 3-5 TIMES PER WEEK
  7. INFUFER [Concomitant]
     Route: 042
     Dates: start: 20100225
  8. TUMS [Concomitant]
  9. VERAPAMIL [Concomitant]
     Indication: ARRHYTHMIA
     Dosage: 240 MG 1-2 TIMES DAILY
  10. SYNTHROID [Concomitant]
  11. ATROVENT [Concomitant]
     Dosage: 2 PUFFS BID
  12. PULMICORT [Concomitant]
     Dosage: 1 PUFF BID
  13. CALCIUM [Concomitant]
  14. VITAMIN D [Concomitant]

REACTIONS (11)
  - ABDOMINAL DISTENSION [None]
  - COLONIC POLYP [None]
  - CONSTIPATION [None]
  - EPIGASTRIC DISCOMFORT [None]
  - ERUCTATION [None]
  - GASTROINTESTINAL HAEMORRHAGE [None]
  - HAEMORRHOIDS [None]
  - IRON DEFICIENCY ANAEMIA [None]
  - MUSCULOSKELETAL CHEST PAIN [None]
  - RECTAL HAEMORRHAGE [None]
  - RECTAL ULCER [None]
